FAERS Safety Report 15244408 (Version 11)
Quarter: 2018Q4

REPORT INFORMATION
  Report Type: Report from Study
  Country: US (occurrence: US)
  Receive Date: 20180806
  Receipt Date: 20181109
  Transmission Date: 20190204
  Serious: Yes (Death, Hospitalization, Other)
  Sender: FDA-Public Use
  Company Number: US-GILEAD-2018-0353433

PATIENT
  Age: 57 Year
  Sex: Female
  Weight: 43.99 kg

DRUGS (4)
  1. AMBRISENTAN [Suspect]
     Active Substance: AMBRISENTAN
     Indication: PULMONARY ARTERIAL HYPERTENSION
     Dosage: 10 MG, QD
     Route: 065
     Dates: start: 20150410
  2. AMBRISENTAN [Suspect]
     Active Substance: AMBRISENTAN
     Indication: DRUG USE DISORDER
  3. REMODULIN [Suspect]
     Active Substance: TREPROSTINIL
     Indication: PULMONARY ARTERIAL HYPERTENSION
     Dosage: 114 NG/KG/MIN
     Route: 042
     Dates: start: 20150409
  4. ADCIRCA [Concomitant]
     Active Substance: TADALAFIL

REACTIONS (11)
  - Right ventricular failure [Fatal]
  - Malaise [Not Recovered/Not Resolved]
  - Hypersensitivity [Unknown]
  - Chronic obstructive pulmonary disease [Not Recovered/Not Resolved]
  - Acute respiratory failure [Not Recovered/Not Resolved]
  - Pulmonary hypertension [Not Recovered/Not Resolved]
  - Status asthmaticus [Unknown]
  - Drug ineffective [Not Recovered/Not Resolved]
  - Blood glucose increased [Unknown]
  - Respiratory moniliasis [Unknown]
  - Asthma [Unknown]

NARRATIVE: CASE EVENT DATE: 20180810
